FAERS Safety Report 13167764 (Version 2)
Quarter: 2017Q2

REPORT INFORMATION
  Report Type: Spontaneous
  Country: CH (occurrence: CH)
  Receive Date: 20170131
  Receipt Date: 20170510
  Transmission Date: 20170830
  Serious: Yes (Hospitalization)
  Sender: FDA-Public Use
  Company Number: CH-009507513-1701CHE012057

PATIENT
  Age: 79 Year
  Sex: Male

DRUGS (8)
  1. EUTHYROX [Concomitant]
     Active Substance: LEVOTHYROXINE SODIUM
     Dosage: 75 MICROGRAM, 1 PER 1 DAY(S)
     Route: 048
  2. THERAPY UNSPECIFIED [Suspect]
     Active Substance: UNSPECIFIED INGREDIENT
  3. SIMVASTATIN. [Concomitant]
     Active Substance: SIMVASTATIN
     Dosage: 40 MG, 1 PER 1 DAY(S)
     Route: 048
     Dates: end: 20151215
  4. TRESIBA [Concomitant]
     Active Substance: INSULIN DEGLUDEC
     Dosage: 18 IU, 1 PER 1 DAY(S)
     Route: 058
  5. EPRIL [Concomitant]
     Active Substance: ENALAPRIL MALEATE
     Dosage: 10 MG, 1 PER 1 DAY(S)
     Route: 048
  6. XARELTO [Interacting]
     Active Substance: RIVAROXABAN
     Indication: ATRIAL FIBRILLATION
     Dosage: 20 MG, 1 PER 1 DAY(S)
     Route: 048
     Dates: start: 201509, end: 20151216
  7. NOVORAPID [Concomitant]
     Active Substance: INSULIN ASPART
     Dosage: AS NECESSARY
     Route: 058
  8. BELOC (METOPROLOL SUCCINATE) [Concomitant]
     Dosage: 25 MG, 1 PER 1 DAY(S)
     Route: 048

REACTIONS (2)
  - Normochromic normocytic anaemia [Recovering/Resolving]
  - Melaena [Recovered/Resolved]

NARRATIVE: CASE EVENT DATE: 201512
